FAERS Safety Report 23523859 (Version 1)
Quarter: 2024Q1

REPORT INFORMATION
  Report Type: Spontaneous
  Country: US (occurrence: US)
  Receive Date: 20240214
  Receipt Date: 20240214
  Transmission Date: 20240410
  Serious: No
  Sender: FDA-Public Use
  Company Number: US-ABBVIE-5625957

PATIENT

DRUGS (1)
  1. SUCRALFATE [Suspect]
     Active Substance: SUCRALFATE
     Indication: Product used for unknown indication
     Dosage: FORM STRENGTH: SUCRALFATE 1G SUS(TBD)(ORAL SUSPENSION, 5 ML)
     Route: 048

REACTIONS (2)
  - Product taste abnormal [Unknown]
  - Product taste abnormal [Unknown]
